FAERS Safety Report 25495391 (Version 1)
Quarter: 2025Q2

REPORT INFORMATION
  Report Type: Spontaneous
  Country: US (occurrence: US)
  Receive Date: 20250630
  Receipt Date: 20250630
  Transmission Date: 20250717
  Serious: No
  Sender: FOUNDATION CONSUMER HEALTHCARE
  Company Number: US-FOUNDATIONCONSUMERHC-2025-US-004953

PATIENT
  Age: 29 Year
  Sex: Female
  Weight: 71.67 kg

DRUGS (1)
  1. PLAN B ONE-STEP [Suspect]
     Active Substance: LEVONORGESTREL
     Indication: Post coital contraception
     Route: 048
     Dates: start: 20250111, end: 20250111

REACTIONS (4)
  - Intentional product misuse [Recovered/Resolved]
  - Vaginal haemorrhage [Recovered/Resolved]
  - Menstruation delayed [Not Recovered/Not Resolved]
  - Incorrect dosage administered [Recovered/Resolved]

NARRATIVE: CASE EVENT DATE: 20250111
